FAERS Safety Report 4299208-8 (Version None)
Quarter: 2004Q1

REPORT INFORMATION
  Report Type: 
  Country: None (occurrence: None)
  Receive Date: 20040219
  Receipt Date: 20040209
  Transmission Date: 20041129
  Serious: Yes (Other)
  Sender: FDA-Public Use
  Company Number: FR-BRISTOL-MYERS SQUIBB COMPANY-12500575

PATIENT
  Age: 70 Year
  Sex: Male

DRUGS (1)
  1. COAPROVEL TABS 300MG/12.5MG [Suspect]
     Route: 048
     Dates: start: 20010101

REACTIONS (3)
  - PAIN [None]
  - TENDON DISORDER [None]
  - TENDON RUPTURE [None]
